FAERS Safety Report 6833922-2 (Version None)
Quarter: 2010Q3

REPORT INFORMATION
  Report Type: 
  Country: None (occurrence: None)
  Receive Date: 20100712
  Receipt Date: 20070405
  Transmission Date: 20110219
  Serious: No
  Sender: FDA-Public Use
  Company Number: US-PFIZER INC-2007028458

PATIENT
  Sex: Female
  Weight: 55.79 kg

DRUGS (12)
  1. CHANTIX [Suspect]
     Indication: SMOKING CESSATION THERAPY
     Dates: start: 20070301
  2. QVAR 40 [Concomitant]
  3. ALBUTEROL [Concomitant]
  4. SPIRIVA [Concomitant]
  5. MONTELUKAST SODIUM [Concomitant]
  6. NEXIUM [Concomitant]
  7. IBANDRONATE SODIUM [Concomitant]
  8. BENICAR [Concomitant]
  9. ZETIA [Concomitant]
  10. CRESTOR [Concomitant]
  11. ALL OTHER THERAPEUTIC PRODUCTS [Concomitant]
  12. NICOTINE [Concomitant]

REACTIONS (3)
  - HEADACHE [None]
  - MALAISE [None]
  - NAUSEA [None]
